FAERS Safety Report 17278156 (Version 1)
Quarter: 2020Q1

REPORT INFORMATION
  Report Type: Spontaneous
  Country: US (occurrence: US)
  Receive Date: 20200116
  Receipt Date: 20200116
  Transmission Date: 20200409
  Serious: Yes (Hospitalization)
  Sender: FDA-Public Use
  Company Number: None

PATIENT
  Age: 101 Year
  Sex: Female
  Weight: 72.9 kg

DRUGS (1)
  1. LIDOCAINE HCI TOPICAL SOLUTION USP, 4% [Suspect]
     Active Substance: LIDOCAINE HYDROCHLORIDE
     Indication: LOCAL ANAESTHESIA
     Dosage: ?          OTHER FREQUENCY:SINGLE DOSE;?
     Route: 061
     Dates: start: 20191219, end: 20191219

REACTIONS (3)
  - Foreign body in respiratory tract [None]
  - Device breakage [None]
  - Respiratory tract procedural complication [None]

NARRATIVE: CASE EVENT DATE: 20191219
